FAERS Safety Report 19768801 (Version 1)
Quarter: 2021Q3

REPORT INFORMATION
  Report Type: Spontaneous
  Country: GB (occurrence: GB)
  Receive Date: 20210831
  Receipt Date: 20210831
  Transmission Date: 20211014
  Serious: Yes (Other)
  Sender: FDA-Public Use
  Company Number: GB-AUROBINDO-AUR-APL-2021-033183

PATIENT
  Age: 27 Year
  Sex: Female
  Weight: 71 kg

DRUGS (6)
  1. IBUPROFEN. [Suspect]
     Active Substance: IBUPROFEN
     Indication: PRODUCT USED FOR UNKNOWN INDICATION
     Dosage: UNK
     Route: 065
     Dates: start: 20210721
  2. FEXOFENADINE [Concomitant]
     Active Substance: FEXOFENADINE HYDROCHLORIDE
     Indication: ILL-DEFINED DISORDER
     Dosage: TAKE ONE DAILY
     Route: 065
     Dates: start: 20210721
  3. IBUPROFEN. [Suspect]
     Active Substance: IBUPROFEN
     Indication: PRODUCT USED FOR UNKNOWN INDICATION
  4. NITROFURANTOIN. [Concomitant]
     Active Substance: NITROFURANTOIN
     Indication: ILL-DEFINED DISORDER
     Dosage: 1 DOSAGE FORM, TWO TIMES A DAY(TAKE ONE TWICE DAILY)
     Route: 065
     Dates: start: 20210625
  5. HYOSCINE BUTYLBROMIDE [Concomitant]
     Active Substance: BUTYLSCOPOLAMINE BROMIDE
     Indication: ILL-DEFINED DISORDER
     Dosage: 1 DOSAGE FORM, FOUR TIMES/DAY(TAKE TWO 4 TIMES/DAY)
     Route: 065
     Dates: start: 20210503
  6. PHENOXYMETHYLPENICILLIN [Concomitant]
     Active Substance: PENICILLIN V
     Indication: ILL-DEFINED DISORDER
     Dosage: SORE THROAT/TONSILITIS ? FIRST LINE: TAKE TWO T...
     Route: 065
     Dates: start: 20210721

REACTIONS (3)
  - Rash erythematous [Unknown]
  - Drug eruption [Unknown]
  - Rash [Unknown]

NARRATIVE: CASE EVENT DATE: 20210721
